FAERS Safety Report 15950090 (Version 2)
Quarter: 2019Q1

REPORT INFORMATION
  Report Type: Report from Study
  Country: CO (occurrence: CO)
  Receive Date: 20190211
  Receipt Date: 20190304
  Transmission Date: 20190417
  Serious: No
  Sender: FDA-Public Use
  Company Number: CO-JNJFOC-20190201353

PATIENT
  Age: 29 Year
  Sex: Male
  Weight: 84 kg

DRUGS (2)
  1. STELARA [Suspect]
     Active Substance: USTEKINUMAB
     Indication: PSORIASIS
     Route: 058
     Dates: start: 20180528
  2. STELARA [Suspect]
     Active Substance: USTEKINUMAB
     Indication: PSORIASIS
     Route: 058
     Dates: start: 20171130, end: 20171230

REACTIONS (5)
  - Blood cholesterol abnormal [Not Recovered/Not Resolved]
  - Psoriasis [Unknown]
  - Liver disorder [Not Recovered/Not Resolved]
  - Product dose omission [Unknown]
  - Blood triglycerides abnormal [Not Recovered/Not Resolved]

NARRATIVE: CASE EVENT DATE: 201901
